FAERS Safety Report 4855781-X (Version None)
Quarter: 2005Q4

REPORT INFORMATION
  Report Type: 
  Country: None (occurrence: None)
  Receive Date: 20051216
  Receipt Date: 20050426
  Transmission Date: 20060501
  Serious: Yes (Other)
  Sender: FDA-Public Use
  Company Number: US-MERCK-0504USA04870

PATIENT
  Age: 69 Year
  Sex: Male
  Weight: 80 kg

DRUGS (3)
  1. VIOXX [Suspect]
     Indication: ARTHRITIS
     Route: 048
     Dates: start: 19990101, end: 20010101
  2. VIOXX [Suspect]
     Route: 048
     Dates: start: 20010301, end: 20010601
  3. VIOXX [Suspect]
     Route: 048
     Dates: start: 20031206

REACTIONS (4)
  - ARTHRALGIA [None]
  - INJURY [None]
  - SENSATION OF HEAVINESS [None]
  - THALAMIC INFARCTION [None]
